FAERS Safety Report 8200403-3 (Version None)
Quarter: 2012Q1

REPORT INFORMATION
  Report Type: 
  Country: None (occurrence: None)
  Receive Date: 20120312
  Receipt Date: 20120305
  Transmission Date: 20120608
  Serious: Yes (Hospitalization, Other)
  Sender: FDA-Public Use
  Company Number: BR-PFIZER INC-2012059382

PATIENT
  Age: 85 Year
  Sex: Female

DRUGS (1)
  1. XALATAN [Suspect]
     Indication: GLAUCOMA
     Dosage: 1 DROP EACH EYE, 1X/DAY
     Route: 047
     Dates: start: 20020101

REACTIONS (2)
  - DEMENTIA ALZHEIMER'S TYPE [None]
  - RESPIRATORY FAILURE [None]
